FAERS Safety Report 9547636 (Version 2)
Quarter: 2013Q4

REPORT INFORMATION
  Report Type: Spontaneous
  Country: JP (occurrence: JP)
  Receive Date: 20130924
  Receipt Date: 20131001
  Transmission Date: 20140711
  Serious: Yes (Hospitalization)
  Sender: FDA-Public Use
  Company Number: JP-ALEXION PHARMACEUTICALS INC.-A201302304

PATIENT
  Age: 69 Year
  Sex: Male

DRUGS (2)
  1. SOLIRIS 300MG [Suspect]
     Indication: PAROXYSMAL NOCTURNAL HAEMOGLOBINURIA
     Dosage: 600 MG, QW
     Route: 042
     Dates: start: 20130903
  2. SOLIRIS 300MG [Suspect]
     Dosage: 300 MG, QW
     Route: 042
     Dates: start: 20130918

REACTIONS (4)
  - Leukopenia [Unknown]
  - Condition aggravated [Unknown]
  - Haemolytic anaemia [Unknown]
  - Renal disorder [Unknown]
